FAERS Safety Report 4806320-0 (Version None)
Quarter: 2005Q4

REPORT INFORMATION
  Report Type: 
  Country: None (occurrence: None)
  Receive Date: 20051021
  Receipt Date: 20050923
  Transmission Date: 20060501
  Serious: Yes (Hospitalization)
  Sender: FDA-Public Use
  Company Number: FI-ROCHE-418661

PATIENT
  Age: 73 Year
  Sex: Female

DRUGS (8)
  1. XELODA [Suspect]
     Indication: COLORECTAL CANCER
     Route: 048
     Dates: start: 20050704, end: 20050705
  2. NITROSID [Concomitant]
     Route: 048
  3. NORVASC [Concomitant]
     Indication: HYPERTENSION
     Route: 048
  4. BISOPROLOL [Concomitant]
     Route: 050
  5. AMILORIDE HCL [Concomitant]
     Route: 048
  6. PRIMASPAN [Concomitant]
     Indication: POOR PERIPHERAL CIRCULATION
     Route: 048
  7. DUREKAL [Concomitant]
     Route: 048
  8. CALCICHEW [Concomitant]
     Route: 048

REACTIONS (1)
  - EPILEPSY [None]
